FAERS Safety Report 6595137-5 (Version None)
Quarter: 2010Q1

REPORT INFORMATION
  Report Type: 
  Country: None (occurrence: None)
  Receive Date: 20100212
  Receipt Date: 20100126
  Transmission Date: 20100710
  Serious: Yes (Life-Threatening, Hospitalization)
  Sender: FDA-Public Use
  Company Number: 2009US-29677

PATIENT
  Age: 71 Year
  Sex: Female

DRUGS (3)
  1. METFORMIN HCL [Suspect]
     Indication: DRUG USE FOR UNKNOWN INDICATION
     Dosage: 500MG/DAY
  2. ENALAPRIL MALEATE [Suspect]
     Indication: HYPERTENSION
     Dosage: 5 MG/DAY
  3. GLYBURIDE [Suspect]
     Indication: DIABETES MELLITUS
     Dosage: 15 MG/DAY;

REACTIONS (10)
  - CULTURE URINE POSITIVE [None]
  - DEHYDRATION [None]
  - ESCHERICHIA INFECTION [None]
  - HAEMATOCRIT DECREASED [None]
  - HEART RATE INCREASED [None]
  - LETHARGY [None]
  - METABOLIC ACIDOSIS [None]
  - NODAL ARRHYTHMIA [None]
  - SENSORY DISTURBANCE [None]
  - URINARY TRACT INFECTION [None]
